FAERS Safety Report 6566240-0 (Version None)
Quarter: 2010Q1

REPORT INFORMATION
  Report Type: 
  Country: None (occurrence: None)
  Receive Date: 20100202
  Receipt Date: 20100121
  Transmission Date: 20100710
  Serious: Yes (Other)
  Sender: FDA-Public Use
  Company Number: JP-PFIZER INC-2009311824

PATIENT
  Age: 75 Year
  Sex: Male
  Weight: 62 kg

DRUGS (13)
  1. ZYVOX [Suspect]
     Indication: STAPHYLOCOCCAL INFECTION
     Dosage: 600 MG, 2X/DAY
     Route: 048
     Dates: start: 20091104, end: 20091117
  2. WARFARIN [Interacting]
     Indication: THROMBOSIS PROPHYLAXIS
     Dosage: 2.5 MG/DAY
     Route: 048
     Dates: end: 20091022
  3. WARFARIN [Interacting]
     Dosage: 2.75 MG/DAY
     Route: 048
     Dates: start: 20091023, end: 20091026
  4. WARFARIN [Interacting]
     Dosage: 3 MG/DAY
     Route: 048
     Dates: start: 20091027, end: 20091112
  5. WARFARIN [Interacting]
     Dosage: 2.75 MG/DAY
     Route: 048
     Dates: start: 20091113, end: 20091120
  6. WARFARIN [Interacting]
     Dosage: 3 MG/DAY
     Route: 048
     Dates: start: 20091124
  7. DAONIL [Concomitant]
     Dosage: UNK
     Route: 048
     Dates: start: 20080101
  8. NORVASC [Concomitant]
     Dosage: UNK
     Route: 048
     Dates: start: 20080101
  9. VALSARTAN [Concomitant]
     Dosage: UNK
     Route: 048
     Dates: start: 20080101
  10. PLETAL [Concomitant]
     Dosage: UNK
     Route: 048
     Dates: start: 20080101
  11. DORNER [Concomitant]
     Dosage: UNK
     Route: 048
     Dates: start: 20080101
  12. LOXONIN [Concomitant]
     Dosage: UNK
     Route: 048
  13. BROTIZOLAM [Concomitant]
     Dosage: UNK
     Route: 048

REACTIONS (2)
  - DRUG INTERACTION [None]
  - INTERNATIONAL NORMALISED RATIO INCREASED [None]
